FAERS Safety Report 24673935 (Version 2)
Quarter: 2025Q1

REPORT INFORMATION
  Report Type: Spontaneous
  Country: AZ (occurrence: AZ)
  Receive Date: 20241128
  Receipt Date: 20250110
  Transmission Date: 20250409
  Serious: Yes (Death, Other)
  Sender: RANBAXY
  Company Number: AZ-SUN PHARMACEUTICAL INDUSTRIES LTD-2024R1-481427

PATIENT
  Age: 69 Year
  Sex: Female

DRUGS (2)
  1. CLARITHROMYCIN [Suspect]
     Active Substance: CLARITHROMYCIN
     Indication: Cryptococcal cutaneous infection
     Route: 065
  2. DOXYCYCLINE [Suspect]
     Active Substance: DOXYCYCLINE
     Indication: Cryptococcal cutaneous infection
     Route: 065

REACTIONS (1)
  - Condition aggravated [Fatal]
